FAERS Safety Report 15259205 (Version 1)
Quarter: 2018Q3

REPORT INFORMATION
  Report Type: Spontaneous
  Country: US (occurrence: US)
  Receive Date: 20180718
  Receipt Date: 20180718
  Transmission Date: 20181010
  Serious: Yes (Life-Threatening, Disabling, Other)
  Sender: FDA-Public Use
  Company Number: None

PATIENT
  Age: 65 Year
  Sex: Male
  Weight: 70.31 kg

DRUGS (1)
  1. METOPROLOL SUCCINATE. [Suspect]
     Active Substance: METOPROLOL SUCCINATE
     Indication: PRODUCT USED FOR UNKNOWN INDICATION
     Dosage: ?          QUANTITY:1 DF DOSAGE FORM;?
     Route: 048
     Dates: start: 20170921, end: 20180701

REACTIONS (9)
  - Peripheral swelling [None]
  - Swelling face [None]
  - Peripheral coldness [None]
  - Swelling [None]
  - Hypoaesthesia [None]
  - Arthropathy [None]
  - Pruritus [None]
  - Diarrhoea [None]
  - Skin discolouration [None]

NARRATIVE: CASE EVENT DATE: 2017
